FAERS Safety Report 14034068 (Version 1)
Quarter: 2017Q4

REPORT INFORMATION
  Report Type: Spontaneous
  Country: US (occurrence: US)
  Receive Date: 20171003
  Receipt Date: 20171003
  Transmission Date: 20180321
  Serious: No
  Sender: FDA-Public Use
  Company Number: US-TEVA-757467ACC

PATIENT
  Sex: Female

DRUGS (2)
  1. CLONAZEPAM. [Suspect]
     Active Substance: CLONAZEPAM
     Indication: PANIC ATTACK
     Dosage: 3 MILLIGRAM DAILY;
  2. CLONAZEPAM. [Suspect]
     Active Substance: CLONAZEPAM
     Indication: ANXIETY

REACTIONS (5)
  - Wrong technique in product usage process [Unknown]
  - Decreased interest [Unknown]
  - Somnolence [Unknown]
  - Feeling drunk [Unknown]
  - Sluggishness [Unknown]
